FAERS Safety Report 6608811-9 (Version None)
Quarter: 2010Q1

REPORT INFORMATION
  Report Type: 
  Country: None (occurrence: None)
  Receive Date: 20100226
  Receipt Date: 20100226
  Transmission Date: 20100710
  Serious: No
  Sender: FDA-Public Use
  Company Number: None

PATIENT
  Age: 50 Year
  Sex: Female
  Weight: 117.4816 kg

DRUGS (6)
  1. TRIPLE ANTIBIOTIC OINTMENT [Suspect]
     Dosage: ONCE DAILY TOPICAL
     Route: 061
  2. QUETIAPINE [Concomitant]
  3. ALPRAZOLAM [Concomitant]
  4. BUPROPION HCL [Concomitant]
  5. NITROGLYCERIN [Concomitant]
  6. LIBRIUM [Concomitant]

REACTIONS (2)
  - EXCORIATION [None]
  - TREATMENT NONCOMPLIANCE [None]
